FAERS Safety Report 11683418 (Version 2)
Quarter: 2015Q4

REPORT INFORMATION
  Report Type: Report from Study
  Country: GR (occurrence: GR)
  Receive Date: 20151029
  Receipt Date: 20151230
  Transmission Date: 20160304
  Serious: Yes (Hospitalization, Other)
  Sender: FDA-Public Use
  Company Number: GR-INCYTE CORPORATION-2015IN005436

PATIENT
  Age: 76 Year
  Sex: Male
  Weight: 89 kg

DRUGS (35)
  1. PULMICORT TURBUHALER [Concomitant]
     Active Substance: BUDESONIDE
     Indication: CARDIAC FAILURE
  2. DAXAS [Concomitant]
     Active Substance: ROFLUMILAST
     Indication: CARDIAC FAILURE
  3. DUOCOVER [Concomitant]
     Indication: PRODUCT USED FOR UNKNOWN INDICATION
     Dosage: UNK
  4. DUOCOVER [Concomitant]
     Indication: CARDIAC FAILURE
  5. APROVEL [Concomitant]
     Active Substance: IRBESARTAN
     Indication: PRODUCT USED FOR UNKNOWN INDICATION
     Dosage: 150 MG, QD (1 X1)
     Route: 065
  6. APROVEL [Concomitant]
     Active Substance: IRBESARTAN
     Indication: CARDIAC FAILURE
  7. XOZAL [Concomitant]
     Active Substance: LEVOCETIRIZINE
     Indication: BENIGN PROSTATIC HYPERPLASIA
     Dosage: (1X 1)
     Route: 065
  8. XOZAL [Concomitant]
     Active Substance: LEVOCETIRIZINE
     Indication: CHRONIC OBSTRUCTIVE PULMONARY DISEASE
  9. DAXAS [Concomitant]
     Active Substance: ROFLUMILAST
     Indication: CHRONIC OBSTRUCTIVE PULMONARY DISEASE
  10. APROVEL [Concomitant]
     Active Substance: IRBESARTAN
     Indication: CHRONIC OBSTRUCTIVE PULMONARY DISEASE
  11. LORINDIN//LORATADINE [Concomitant]
     Indication: PRODUCT USED FOR UNKNOWN INDICATION
     Dosage: UNK
     Dates: start: 20150313, end: 20150319
  12. XAGRID [Concomitant]
     Active Substance: ANAGRELIDE HYDROCHLORIDE
     Indication: CARDIAC FAILURE
  13. PULMICORT TURBUHALER [Concomitant]
     Active Substance: BUDESONIDE
     Indication: BENIGN PROSTATIC HYPERPLASIA
  14. DUOCOVER [Concomitant]
     Indication: BENIGN PROSTATIC HYPERPLASIA
     Dosage: (1 X 1)
     Route: 065
  15. XOZAL [Concomitant]
     Active Substance: LEVOCETIRIZINE
     Indication: PRODUCT USED FOR UNKNOWN INDICATION
     Dosage: UNK
  16. XOZAL [Concomitant]
     Active Substance: LEVOCETIRIZINE
     Indication: CARDIAC FAILURE
  17. LASIX [Concomitant]
     Active Substance: FUROSEMIDE
     Indication: ANAEMIA
  18. APROVEL [Concomitant]
     Active Substance: IRBESARTAN
     Indication: BENIGN PROSTATIC HYPERPLASIA
  19. SILODYX [Concomitant]
     Active Substance: SILODOSIN
     Indication: CARDIAC FAILURE
  20. SILODYX [Concomitant]
     Active Substance: SILODOSIN
     Indication: BENIGN PROSTATIC HYPERPLASIA
  21. JAKAFI [Suspect]
     Active Substance: RUXOLITINIB
     Indication: MYELOFIBROSIS
     Dosage: 5 MG, BID (1 X 2)
     Route: 048
     Dates: start: 20150302
  22. LASIX [Concomitant]
     Active Substance: FUROSEMIDE
     Indication: PRODUCT USED FOR UNKNOWN INDICATION
     Dosage: (1 X 1)
     Route: 065
     Dates: start: 20150313, end: 20150319
  23. SILODYX [Concomitant]
     Active Substance: SILODOSIN
     Indication: CHRONIC OBSTRUCTIVE PULMONARY DISEASE
  24. DAXAS [Concomitant]
     Active Substance: ROFLUMILAST
     Indication: BENIGN PROSTATIC HYPERPLASIA
  25. XAGRID [Concomitant]
     Active Substance: ANAGRELIDE HYDROCHLORIDE
     Indication: PRODUCT USED FOR UNKNOWN INDICATION
     Dosage: UNK
     Route: 065
     Dates: start: 20150313, end: 20150319
  26. XAGRID [Concomitant]
     Active Substance: ANAGRELIDE HYDROCHLORIDE
     Indication: CHRONIC OBSTRUCTIVE PULMONARY DISEASE
  27. XAGRID [Concomitant]
     Active Substance: ANAGRELIDE HYDROCHLORIDE
     Indication: BENIGN PROSTATIC HYPERPLASIA
  28. SILODYX [Concomitant]
     Active Substance: SILODOSIN
     Indication: PRODUCT USED FOR UNKNOWN INDICATION
     Dosage: 8 MG, UNK
     Route: 065
  29. DILATREND [Concomitant]
     Active Substance: CARVEDILOL
     Indication: CARDIAC FAILURE
  30. PULMICORT TURBUHALER [Concomitant]
     Active Substance: BUDESONIDE
     Indication: PRODUCT USED FOR UNKNOWN INDICATION
     Dosage: (1 X 2)
     Route: 065
     Dates: start: 20150313, end: 20150319
  31. PULMICORT TURBUHALER [Concomitant]
     Active Substance: BUDESONIDE
     Indication: CHRONIC OBSTRUCTIVE PULMONARY DISEASE
  32. DAXAS [Concomitant]
     Active Substance: ROFLUMILAST
     Indication: PRODUCT USED FOR UNKNOWN INDICATION
     Dosage: (0.5 X 1)
     Route: 065
     Dates: start: 20150313, end: 20150319
  33. DUOCOVER [Concomitant]
     Indication: CHRONIC OBSTRUCTIVE PULMONARY DISEASE
  34. DILATREND [Concomitant]
     Active Substance: CARVEDILOL
     Indication: PRODUCT USED FOR UNKNOWN INDICATION
     Dosage: 6.25 UNK, (0.5 X 1)
     Route: 065
  35. DILATREND [Concomitant]
     Active Substance: CARVEDILOL
     Indication: BENIGN PROSTATIC HYPERPLASIA

REACTIONS (4)
  - Abdominal discomfort [Recovered/Resolved]
  - Escherichia urinary tract infection [Unknown]
  - Asthenia [Recovered/Resolved]
  - Neutrophil count increased [Unknown]

NARRATIVE: CASE EVENT DATE: 20150312
